FAERS Safety Report 24222148 (Version 1)
Quarter: 2024Q3

REPORT INFORMATION
  Report Type: Report from Study
  Country: US (occurrence: US)
  Receive Date: 20240819
  Receipt Date: 20240819
  Transmission Date: 20241017
  Serious: Yes (Hospitalization)
  Sender: MYLAN
  Company Number: US-MYLANLABS-2024M1074808

PATIENT
  Age: 15 Year
  Sex: Female

DRUGS (4)
  1. PROPRANOLOL [Suspect]
     Active Substance: PROPRANOLOL HYDROCHLORIDE
     Indication: Occipital neuralgia
     Dosage: UNK
     Route: 065
  2. BOTOX [Suspect]
     Active Substance: ONABOTULINUMTOXINA
     Indication: Occipital neuralgia
     Dosage: UNK
     Route: 065
  3. NARATRIPTAN [Suspect]
     Active Substance: NARATRIPTAN HYDROCHLORIDE
     Indication: Occipital neuralgia
     Dosage: UNK
     Route: 065
  4. TORADOL [Suspect]
     Active Substance: KETOROLAC TROMETHAMINE
     Indication: Occipital neuralgia
     Dosage: UNK
     Route: 065

REACTIONS (1)
  - Drug ineffective [Unknown]
